FAERS Safety Report 25078261 (Version 1)
Quarter: 2025Q1

REPORT INFORMATION
  Report Type: Spontaneous
  Country: ES (occurrence: ES)
  Receive Date: 20250314
  Receipt Date: 20250314
  Transmission Date: 20250408
  Serious: Yes (Other)
  Sender: NOVARTIS
  Company Number: ES-002147023-NVSC2025ES039656

PATIENT
  Age: 40 Year
  Sex: Female

DRUGS (2)
  1. ALPELISIB [Suspect]
     Active Substance: ALPELISIB
     Indication: PIK3CA related overgrowth spectrum
     Route: 065
  2. ALPELISIB [Suspect]
     Active Substance: ALPELISIB
     Route: 065

REACTIONS (6)
  - Syncope [Unknown]
  - Dysgeusia [Unknown]
  - Decreased appetite [Unknown]
  - Diarrhoea [Unknown]
  - Hypotension [Unknown]
  - Off label use [Unknown]
